FAERS Safety Report 4835831-7 (Version None)
Quarter: 2005Q4

REPORT INFORMATION
  Report Type: 
  Country: None (occurrence: None)
  Receive Date: 20051118
  Receipt Date: 20051102
  Transmission Date: 20060501
  Serious: Yes (Hospitalization, Other)
  Sender: FDA-Public Use
  Company Number: 2005064070

PATIENT
  Age: 71 Year
  Sex: Female
  Weight: 131.5431 kg

DRUGS (22)
  1. BEXTRA [Suspect]
     Indication: OSTEOARTHRITIS
     Dosage: 10 MG  (10 MG, 1 IN 1 D), ORAL
     Route: 048
     Dates: end: 20050401
  2. BENADRYL [Suspect]
     Indication: RASH
  3. BUMEX [Concomitant]
  4. KLOR-CON [Concomitant]
  5. FOSAMAX [Concomitant]
  6. GLIPIZIDE [Concomitant]
  7. TOPROL-XL [Concomitant]
  8. DIGOXIN [Concomitant]
  9. ZOLOFT [Concomitant]
  10. NEXIUM [Concomitant]
  11. PROPACET 100 [Concomitant]
  12. AMBIEN [Concomitant]
  13. WARFARIN SODIUM [Concomitant]
  14. DILTIAZEM [Concomitant]
  15. PERCOCET [Concomitant]
  16. PROMETHAZINE [Concomitant]
  17. ATIVAN [Concomitant]
  18. ALPRAZOLAM [Concomitant]
  19. ULTRAM [Concomitant]
  20. OXYCODONE (OXYCODONE) [Concomitant]
  21. VICODIN [Concomitant]
  22. ANASTROZOLE (ANASTROZOLE) [Concomitant]

REACTIONS (42)
  - ASTHENIA [None]
  - ATRIAL FIBRILLATION [None]
  - BACK PAIN [None]
  - BREAST CANCER [None]
  - CARDIAC FAILURE CONGESTIVE [None]
  - CLOSTRIDIUM COLITIS [None]
  - CONSTIPATION [None]
  - DEPRESSION [None]
  - DRUG EFFECT DECREASED [None]
  - DRUG INEFFECTIVE [None]
  - ERYTHEMA [None]
  - FALL [None]
  - FLANK PAIN [None]
  - GAIT DISTURBANCE [None]
  - GENITAL PRURITUS FEMALE [None]
  - HEART RATE INCREASED [None]
  - INCONTINENCE [None]
  - LIMB DISCOMFORT [None]
  - MICTURITION URGENCY [None]
  - MUSCLE SPASMS [None]
  - NEUROPATHY PERIPHERAL [None]
  - OEDEMA PERIPHERAL [None]
  - OESTROGEN RECEPTOR ASSAY POSITIVE [None]
  - PAIN [None]
  - PAIN IN JAW [None]
  - PALPITATIONS [None]
  - PHARYNGITIS [None]
  - PITTING OEDEMA [None]
  - PNEUMONIA [None]
  - POLLAKIURIA [None]
  - PRURITUS [None]
  - RASH MACULO-PAPULAR [None]
  - SENSATION OF FOREIGN BODY [None]
  - SINUSITIS [None]
  - SKIN HYPOPIGMENTATION [None]
  - SKIN LESION [None]
  - SLEEP APNOEA SYNDROME [None]
  - SOMNOLENCE [None]
  - SPINAL COMPRESSION FRACTURE [None]
  - UPPER LIMB FRACTURE [None]
  - URTICARIA [None]
  - WEIGHT DECREASED [None]
